FAERS Safety Report 10433844 (Version 2)
Quarter: 2014Q3

REPORT INFORMATION
  Report Type: Spontaneous
  Country: US (occurrence: US)
  Receive Date: 20140905
  Receipt Date: 20140905
  Transmission Date: 20150326
  Serious: Yes (Hospitalization)
  Sender: FDA-Public Use
  Company Number: US-GLAXOSMITHKLINE-A0744556A

PATIENT
  Sex: Female
  Weight: 71.8 kg

DRUGS (1)
  1. AVANDIA [Suspect]
     Active Substance: ROSIGLITAZONE MALEATE
     Indication: TYPE 2 DIABETES MELLITUS
     Route: 048
     Dates: start: 200404, end: 2007

REACTIONS (12)
  - Cardiac failure congestive [Unknown]
  - Atrial fibrillation [Unknown]
  - Tricuspid valve incompetence [Unknown]
  - Sick sinus syndrome [Unknown]
  - Asthenia [Unknown]
  - Atrial flutter [Unknown]
  - Platelet count decreased [Unknown]
  - Ischaemic cardiomyopathy [Unknown]
  - Supraventricular tachycardia [Unknown]
  - Pleural effusion [Unknown]
  - Myocardial infarction [Unknown]
  - Abasia [Unknown]
